FAERS Safety Report 7106044-3 (Version None)
Quarter: 2010Q4

REPORT INFORMATION
  Report Type: 
  Country: None (occurrence: None)
  Receive Date: 20101018
  Receipt Date: 20090923
  Transmission Date: 20110411
  Serious: No
  Sender: FDA-Public Use
  Company Number: US-WYE-H11195209

PATIENT
  Age: 50 Year
  Sex: Female

DRUGS (2)
  1. PREMARIN [Suspect]
     Indication: HOT FLUSH
     Dosage: 1 TABLET 1X PER 1 DAY, ORAL
     Route: 048
     Dates: start: 20090923
  2. ATIVAN [Concomitant]

REACTIONS (2)
  - CONDITION AGGRAVATED [None]
  - TINNITUS [None]
